FAERS Safety Report 17752549 (Version 1)
Quarter: 2020Q2

REPORT INFORMATION
  Report Type: Spontaneous
  Country: US (occurrence: US)
  Receive Date: 20200506
  Receipt Date: 20200506
  Transmission Date: 20200714
  Serious: Yes (Hospitalization)
  Sender: FDA-Public Use
  Company Number: US-PARATEK PHARMACEUTICALS, INC.-2020PTK00053

PATIENT
  Sex: Male

DRUGS (3)
  1. NUZYRA [Suspect]
     Active Substance: OMADACYCLINE
     Indication: BACTERIAL INFECTION
     Dosage: 300 MG, 1X/DAY
     Route: 048
  2. NUZYRA [Suspect]
     Active Substance: OMADACYCLINE
     Indication: ABSCESS
  3. NUZYRA [Suspect]
     Active Substance: OMADACYCLINE
     Indication: PERITONEAL ABSCESS

REACTIONS (2)
  - Drug dose titration not performed [Not Recovered/Not Resolved]
  - Hospitalisation [Recovered/Resolved]
